FAERS Safety Report 7899926-6 (Version None)
Quarter: 2011Q4

REPORT INFORMATION
  Report Type: 
  Country: None (occurrence: None)
  Receive Date: 20111107
  Receipt Date: 20111010
  Transmission Date: 20120403
  Serious: No
  Sender: FDA-Public Use
  Company Number: US-AMGEN-USASP2011047609

PATIENT
  Age: 52 Year
  Sex: Female

DRUGS (2)
  1. ENBREL [Suspect]
     Indication: RHEUMATOID ARTHRITIS
     Dosage: 50 MG, QWK
     Dates: start: 20080415
  2. INFLUENZA VACCINE [Concomitant]
     Dosage: UNK
     Dates: start: 20090101

REACTIONS (5)
  - PYREXIA [None]
  - OROPHARYNGEAL PAIN [None]
  - CHILLS [None]
  - RHINORRHOEA [None]
  - RESPIRATORY TRACT INFECTION BACTERIAL [None]
